FAERS Safety Report 5488518-4 (Version None)
Quarter: 2007Q4

REPORT INFORMATION
  Report Type: 
  Country: None (occurrence: None)
  Receive Date: 20071017
  Receipt Date: 20071005
  Transmission Date: 20080405
  Serious: Yes (Other)
  Sender: FDA-Public Use
  Company Number: US-ELI_LILLY_AND_COMPANY-US200710001592

PATIENT
  Age: 75 Year
  Sex: Female

DRUGS (13)
  1. CYMBALTA [Suspect]
     Indication: DEPRESSION
     Dosage: 60 MG, DAILY (1/D)
     Dates: start: 20070101
  2. CYMBALTA [Suspect]
     Dosage: 60 MG, 2/D
     Dates: start: 20070101
  3. COREG [Concomitant]
  4. LISINOPRIL [Concomitant]
  5. LASIX [Concomitant]
  6. ALDACTONE [Concomitant]
  7. VESICARE [Concomitant]
  8. IMDUR [Concomitant]
  9. K-DUR 10 [Concomitant]
  10. ULTRACET [Concomitant]
  11. TYLENOL                                 /SCH/ [Concomitant]
  12. KLONOPIN [Concomitant]
  13. AMBIEN [Concomitant]

REACTIONS (6)
  - BLOOD CREATININE INCREASED [None]
  - BLOOD PRESSURE DECREASED [None]
  - DEHYDRATION [None]
  - DEPRESSION [None]
  - DIZZINESS [None]
  - FALL [None]
